FAERS Safety Report 4275737-8 (Version None)
Quarter: 2004Q1

REPORT INFORMATION
  Report Type: 
  Country: None (occurrence: None)
  Receive Date: 20040121
  Receipt Date: 20040114
  Transmission Date: 20041129
  Serious: Yes (Other)
  Sender: FDA-Public Use
  Company Number: PHBS2004BR00821

PATIENT
  Sex: Female
  Weight: 78 kg

DRUGS (1)
  1. TEGRETOL [Suspect]
     Indication: MOOD ALTERED
     Dosage: .5 TABLET, BID
     Route: 048
     Dates: start: 20020301

REACTIONS (1)
  - WEIGHT INCREASED [None]
